FAERS Safety Report 4822855-9 (Version None)
Quarter: 2005Q4

REPORT INFORMATION
  Report Type: 
  Country: None (occurrence: None)
  Receive Date: 20051104
  Receipt Date: 20051027
  Transmission Date: 20060501
  Serious: Yes (Other)
  Sender: FDA-Public Use
  Company Number: 2005134283

PATIENT
  Age: 91 Year
  Sex: Male
  Weight: 68 kg

DRUGS (7)
  1. ZOLOFT [Suspect]
     Indication: DEPRESSION
     Dosage: 50 MG (50 MG, 1 IN 1 D), ORAL
     Route: 048
     Dates: start: 20031101
  2. KARDEGIC (ACETYLSALICYLATE LYSINE) [Suspect]
     Indication: ARTERIOSCLEROSIS
     Dosage: 75 MG (75 MG, 1 IN 1 D), ORAL
     Route: 048
     Dates: start: 20041104
  3. PERMIXON (SERENOA REPENS) [Concomitant]
  4. FEXOFENADINE HCL [Concomitant]
  5. CALCIPRAT (CALCIUM CARBONATE) [Concomitant]
  6. LEGALON (SILYMARIN) [Concomitant]
  7. CARBOSYLANE (CHARCOAL; ACTIVATED, DIMETICONE) [Concomitant]

REACTIONS (8)
  - ARTERIOSCLEROSIS [None]
  - DRUG INTERACTION [None]
  - GASTROINTESTINAL HAEMORRHAGE [None]
  - HAEMATEMESIS [None]
  - HIATUS HERNIA [None]
  - OESOPHAGITIS [None]
  - PEPTIC ULCER [None]
  - WHITE BLOOD CELL COUNT INCREASED [None]
